FAERS Safety Report 10073055 (Version 2)
Quarter: 2014Q2

REPORT INFORMATION
  Report Type: Spontaneous
  Country: US (occurrence: US)
  Receive Date: 20140411
  Receipt Date: 20140411
  Transmission Date: 20141212
  Serious: Yes (Hospitalization)
  Sender: FDA-Public Use
  Company Number: US-INCYTE CORPORATION-2014IN000602

PATIENT
  Age: 83 Year
  Sex: Female

DRUGS (19)
  1. JAKAFI [Suspect]
     Indication: MYELOFIBROSIS
     Dosage: 15 MG, BID
     Route: 048
     Dates: start: 20120801
  2. JAKAFI [Suspect]
     Dosage: 10 MG, BID
     Route: 048
  3. COPPER [Concomitant]
  4. PROBIOTICS [Concomitant]
  5. VIACTIV                            /00751501/ [Concomitant]
  6. RECLAST [Concomitant]
  7. ALIGN [Concomitant]
  8. ALBUTEROL                          /00139501/ [Concomitant]
  9. LACTAID [Concomitant]
  10. FLUTICASONE [Concomitant]
  11. BENADRYL                           /00000402/ [Concomitant]
  12. EPIPEN [Concomitant]
  13. GENTAMYCIN                         /00047101/ [Concomitant]
  14. VITAMIN D3 [Concomitant]
  15. LORATADINE [Concomitant]
  16. SIMVASTATIN [Concomitant]
  17. PREVACID [Concomitant]
  18. IMODIUM AD [Concomitant]
  19. GABAPENTIN [Concomitant]

REACTIONS (3)
  - Hospitalisation [Unknown]
  - Back pain [Unknown]
  - Cystitis [Unknown]
